FAERS Safety Report 4543174-4 (Version None)
Quarter: 2005Q1

REPORT INFORMATION
  Report Type: 
  Country: None (occurrence: None)
  Receive Date: 20050103
  Receipt Date: 20041220
  Transmission Date: 20050727
  Serious: Yes (Other)
  Sender: FDA-Public Use
  Company Number: GB-JNJFOC-20041205643

PATIENT
  Age: 77 Year
  Sex: Male

DRUGS (11)
  1. DURAGESIC [Suspect]
     Indication: DRUG USE FOR UNKNOWN INDICATION
     Route: 062
  2. BUPIVACAINE [Interacting]
     Indication: ANAESTHESIA
     Route: 008
  3. DIAMORPHINE [Suspect]
     Indication: POSTOPERATIVE ANALGESIA
     Route: 008
  4. AMOXICILLIN [Concomitant]
     Dosage: 6 HRLY.
     Route: 065
  5. HYOSCINE HBR HYT [Concomitant]
     Dosage: 8 HRLY.
     Route: 065
  6. NITROUS OXIDE [Concomitant]
     Indication: ANAESTHESIA
     Route: 065
  7. OXYGEN [Concomitant]
     Indication: ANAESTHESIA
     Route: 065
  8. ISOFLURANE [Concomitant]
     Indication: ANAESTHESIA
     Route: 065
  9. ATRACURIUM BESYLATE [Concomitant]
     Indication: ANAESTHESIA
     Route: 065
  10. CO-PROXAMOL [Concomitant]
     Route: 065
  11. CO-PROXAMOL [Concomitant]
     Route: 065

REACTIONS (6)
  - BODY TEMPERATURE DECREASED [None]
  - DRUG INTERACTION [None]
  - INFUSION SITE PAIN [None]
  - OVERDOSE [None]
  - POST PROCEDURAL PAIN [None]
  - RESPIRATORY FAILURE [None]
